FAERS Safety Report 8890241 (Version 1)
Quarter: 2012Q4

REPORT INFORMATION
  Report Type: Report from Study
  Country: CA (occurrence: CA)
  Receive Date: 20121107
  Receipt Date: 20121107
  Transmission Date: 20130627
  Serious: Yes (Other)
  Sender: FDA-Public Use
  Company Number: CA-JNJFOC-20121016822

PATIENT
  Age: 15 Year
  Sex: Male
  Weight: 52 kg

DRUGS (4)
  1. REMICADE [Suspect]
     Indication: CROHN^S DISEASE
     Route: 042
     Dates: start: 20120915
  2. CIPRO [Concomitant]
     Route: 065
  3. VITAMIN [Concomitant]
     Route: 065
  4. ALL OTHER THERAPEUTICS [Concomitant]
     Route: 065

REACTIONS (1)
  - Neuropathy peripheral [Not Recovered/Not Resolved]
